FAERS Safety Report 7584207-0 (Version None)
Quarter: 2011Q2

REPORT INFORMATION
  Report Type: 
  Country: None (occurrence: None)
  Receive Date: 20110630
  Receipt Date: 20110117
  Transmission Date: 20111010
  Serious: No
  Sender: FDA-Public Use
  Company Number: US-ABBOTT-11P-163-0698959-00

PATIENT
  Sex: Female
  Weight: 52.664 kg

DRUGS (2)
  1. XANAX [Concomitant]
     Indication: ANXIETY
  2. NORVIR [Suspect]
     Indication: HIV INFECTION
     Dates: start: 20090101

REACTIONS (2)
  - ALOPECIA [None]
  - ACNE [None]
